FAERS Safety Report 7098212-4 (Version None)
Quarter: 2010Q4

REPORT INFORMATION
  Report Type: 
  Country: None (occurrence: None)
  Receive Date: 20101105
  Receipt Date: 20101026
  Transmission Date: 20110411
  Serious: Yes (Life-Threatening, Disabling)
  Sender: FDA-Public Use
  Company Number: 2010JP004477

PATIENT
  Age: 70 Year
  Sex: Male
  Weight: 45 kg

DRUGS (4)
  1. PROGRAF [Suspect]
     Indication: RHEUMATOID ARTHRITIS
     Dosage: 1 MG, UID/QD, ORAL
     Route: 048
     Dates: start: 20090801, end: 20091231
  2. METOLATE (METHOTREXATE) PER ORAL NOS [Suspect]
     Dosage: 8 MG, WEEKLY, ORAL
     Route: 048
     Dates: start: 20091001, end: 20091231
  3. PREDNISOLONE [Suspect]
     Dosage: 2.5 MG, BID, ORAL
     Route: 048
     Dates: start: 19940101
  4. PREDNISOLONE (PREDNISOLONE SODIUM PHOSPHATE) [Concomitant]

REACTIONS (4)
  - ABDOMINAL PAIN [None]
  - HEPATIC FUNCTION ABNORMAL [None]
  - HERPES ZOSTER [None]
  - INAPPROPRIATE ANTIDIURETIC HORMONE SECRETION [None]
